FAERS Safety Report 24162205 (Version 1)
Quarter: 2024Q3

REPORT INFORMATION
  Report Type: Spontaneous
  Country: MX (occurrence: MX)
  Receive Date: 20240801
  Receipt Date: 20240801
  Transmission Date: 20241017
  Serious: Yes (Hospitalization)
  Sender: BAYER
  Company Number: MX-BAYER-2024A110395

PATIENT
  Age: 29 Year
  Sex: Male

DRUGS (1)
  1. DAMOCTOCOG ALFA PEGOL [Suspect]
     Active Substance: DAMOCTOCOG ALFA PEGOL
     Indication: Factor VIII deficiency
     Dosage: EVERY 6 DAYS

REACTIONS (2)
  - Haemorrhage [Recovered/Resolved]
  - Dyspnoea [Unknown]
